FAERS Safety Report 6393544-7 (Version None)
Quarter: 2009Q4

REPORT INFORMATION
  Report Type: 
  Country: None (occurrence: None)
  Receive Date: 20091008
  Receipt Date: 20091002
  Transmission Date: 20100525
  Serious: Yes (Disabling)
  Sender: FDA-Public Use
  Company Number: B0595968A

PATIENT
  Age: 73 Year
  Sex: Male
  Weight: 94 kg

DRUGS (3)
  1. CEFUROXIME [Suspect]
     Route: 042
     Dates: start: 20090514
  2. ALBUTEROL [Concomitant]
     Indication: ASTHMA
     Route: 055
     Dates: start: 19991201
  3. QVAR 40 [Concomitant]
     Route: 055
     Dates: start: 20080123

REACTIONS (1)
  - AGEUSIA [None]
